FAERS Safety Report 8234765-8 (Version None)
Quarter: 2012Q1

REPORT INFORMATION
  Report Type: 
  Country: None (occurrence: None)
  Receive Date: 20120322
  Receipt Date: 20120308
  Transmission Date: 20120608
  Serious: Yes (Hospitalization)
  Sender: FDA-Public Use
  Company Number: TPA2012A01401

PATIENT
  Age: 65 Year
  Sex: Female

DRUGS (2)
  1. FUSIDIC ACID [Concomitant]
  2. ADENURIC (FEBUXOSTAT) [Suspect]
     Indication: HYPERURICAEMIA
     Dosage: 80 MG (80 MG, 1 IN 1 D)
     Route: 048
     Dates: start: 20120221, end: 20120302

REACTIONS (2)
  - DIARRHOEA [None]
  - PYREXIA [None]
